FAERS Safety Report 8406086-1 (Version None)
Quarter: 2012Q2

REPORT INFORMATION
  Report Type: 
  Country: None (occurrence: None)
  Receive Date: 20120604
  Receipt Date: 20120530
  Transmission Date: 20120825
  Serious: Yes (Other)
  Sender: FDA-Public Use
  Company Number: US-AMGEN-USASP2011010889

PATIENT
  Age: 45 Year
  Sex: Female
  Weight: 106.12 kg

DRUGS (9)
  1. ZANTAC [Concomitant]
     Indication: COUGH
     Dosage: UNK UNK, ONE TIME DOSE
     Dates: start: 20110420
  2. ENBREL [Suspect]
     Indication: ANKYLOSING SPONDYLITIS
     Dosage: UNK, QWK
     Dates: start: 20111001
  3. RENATA [Concomitant]
     Dosage: UNK UNK, QD
     Route: 048
     Dates: start: 20110223
  4. NASONEX [Concomitant]
     Indication: COUGH
     Dosage: UNK UNK, QD
     Route: 045
     Dates: start: 20110420
  5. MUCINEX [Concomitant]
     Dosage: UNK UNK, PRN
  6. TYLENOL W/ CODEINE [Concomitant]
     Dosage: UNK UNK, PRN
     Dates: start: 20110615
  7. ENBREL [Suspect]
     Dosage: 50 MG, QWK
     Route: 058
     Dates: start: 20040101, end: 20110401
  8. BENADRYL [Concomitant]
     Indication: COUGH
     Dosage: UNK
     Dates: start: 20120420
  9. PRENATAL VITAMINS                  /01549301/ [Concomitant]
     Dosage: UNK

REACTIONS (8)
  - CAESAREAN SECTION [None]
  - PREMATURE RUPTURE OF MEMBRANES [None]
  - HYPERSENSITIVITY [None]
  - PREMATURE DELIVERY [None]
  - COUGH [None]
  - VIITH NERVE PARALYSIS [None]
  - GESTATIONAL DIABETES [None]
  - GESTATIONAL HYPERTENSION [None]
